FAERS Safety Report 20029100 (Version 6)
Quarter: 2022Q1

REPORT INFORMATION
  Report Type: Report from Study
  Country: US (occurrence: US)
  Receive Date: 20211103
  Receipt Date: 20220318
  Transmission Date: 20220423
  Serious: Yes (Hospitalization, Other)
  Sender: FDA-Public Use
  Company Number: US-SANOFI-00580949

PATIENT
  Age: 65 Year
  Sex: Male

DRUGS (2)
  1. DUPILUMAB [Suspect]
     Active Substance: DUPILUMAB
     Indication: Dermatitis atopic
     Dosage: 600 MG, 1X
     Route: 058
     Dates: start: 20210414, end: 20210414
  2. DUPILUMAB [Suspect]
     Active Substance: DUPILUMAB
     Dosage: 300 MG, QOW
     Route: 058
     Dates: start: 20210429, end: 20220207

REACTIONS (24)
  - Pneumonia [Recovering/Resolving]
  - Pertussis [Recovering/Resolving]
  - Dyspnoea [Not Recovered/Not Resolved]
  - Eczema [Unknown]
  - Influenza like illness [Unknown]
  - Asthenia [Unknown]
  - Decreased appetite [Unknown]
  - Weight decreased [Unknown]
  - Fatigue [Unknown]
  - Eye disorder [Not Recovered/Not Resolved]
  - Chronic obstructive pulmonary disease [Recovering/Resolving]
  - Skin exfoliation [Recovering/Resolving]
  - Eyelid exfoliation [Recovering/Resolving]
  - Eye pruritus [Recovering/Resolving]
  - Injection site pain [Recovered/Resolved]
  - Paraesthesia [Unknown]
  - Injection site urticaria [Unknown]
  - Injection site pain [Unknown]
  - Eczema [Unknown]
  - Eye swelling [Not Recovered/Not Resolved]
  - Dermatitis atopic [Unknown]
  - Therapeutic response decreased [Unknown]
  - Product storage error [Unknown]
  - Conjunctivitis [Not Recovered/Not Resolved]

NARRATIVE: CASE EVENT DATE: 20210101
